FAERS Safety Report 5644716-8 (Version None)
Quarter: 2008Q1

REPORT INFORMATION
  Report Type: 
  Country: None (occurrence: None)
  Receive Date: 20080229
  Receipt Date: 20070618
  Transmission Date: 20080703
  Serious: No
  Sender: FDA-Public Use
  Company Number: A0657186A

PATIENT
  Sex: Female

DRUGS (1)
  1. VALTREX [Suspect]
     Indication: GENITAL HERPES
     Dosage: 500MG TWICE PER DAY
     Route: 048
     Dates: start: 20070601

REACTIONS (4)
  - ACCIDENTAL EXPOSURE [None]
  - ANOREXIA [None]
  - NAUSEA [None]
  - PYREXIA [None]
